FAERS Safety Report 6156092-5 (Version None)
Quarter: 2009Q2

REPORT INFORMATION
  Report Type: 
  Country: None (occurrence: None)
  Receive Date: 20090415
  Receipt Date: 20090403
  Transmission Date: 20091009
  Serious: Yes (Life-Threatening, Hospitalization)
  Sender: FDA-Public Use
  Company Number: FR-PFIZER INC-2009164474

PATIENT

DRUGS (1)
  1. SUNITINIB MALATE [Suspect]
     Indication: PROSTATE CANCER
     Dosage: 37.5 MG, 1X/DAY
     Route: 048
     Dates: start: 20080922, end: 20090201

REACTIONS (2)
  - GENERAL PHYSICAL HEALTH DETERIORATION [None]
  - HAEMORRHAGIC DISORDER [None]
